FAERS Safety Report 11445574 (Version 1)
Quarter: 2015Q3

REPORT INFORMATION
  Report Type: Spontaneous
  Country: US (occurrence: None)
  Receive Date: 20150901
  Receipt Date: 20150901
  Transmission Date: 20151125
  Serious: Yes (Other)
  Sender: FDA-Public Use
  Company Number: None

PATIENT
  Age: 68 Year
  Sex: Female
  Weight: 58.7 kg

DRUGS (1)
  1. EVEROLIMUS [Suspect]
     Active Substance: EVEROLIMUS
     Indication: BREAST CANCER
     Dosage: 1 TAB QD ORAL
     Route: 048
     Dates: start: 20130201, end: 20150708

REACTIONS (4)
  - Gastrooesophageal reflux disease [None]
  - Treatment failure [None]
  - Condition aggravated [None]
  - Gastrointestinal wall thickening [None]

NARRATIVE: CASE EVENT DATE: 20150806
